FAERS Safety Report 15749596 (Version 1)
Quarter: 2018Q4

REPORT INFORMATION
  Report Type: Report from Study
  Country: US (occurrence: US)
  Receive Date: 20181221
  Receipt Date: 20181221
  Transmission Date: 20190205
  Serious: Yes (Other)
  Sender: FDA-Public Use
  Company Number: US-GILEAD-2018-0381390

PATIENT
  Age: 79 Year
  Sex: Female

DRUGS (4)
  1. UPTRAVI [Concomitant]
     Active Substance: SELEXIPAG
     Dosage: 600 UG, BID
  2. UPTRAVI [Concomitant]
     Active Substance: SELEXIPAG
     Dosage: 1200 UG, BID
  3. ELIQUIS [Concomitant]
     Active Substance: APIXABAN
  4. AMBRISENTAN [Suspect]
     Active Substance: AMBRISENTAN
     Indication: PRODUCT USED FOR UNKNOWN INDICATION
     Dosage: 10 MG, QD
     Route: 065
     Dates: start: 20121129

REACTIONS (2)
  - Weight decreased [Unknown]
  - Upper limb fracture [Unknown]
